FAERS Safety Report 18484748 (Version 1)
Quarter: 2020Q4

REPORT INFORMATION
  Report Type: Other
  Country: KR (occurrence: KR)
  Receive Date: 20201110
  Receipt Date: 20201110
  Transmission Date: 20210114
  Serious: Yes (Hospitalization)
  Sender: FDA-Public Use
  Company Number: KR-ROCHE-2636213

PATIENT
  Age: 62 Year
  Sex: Female

DRUGS (1)
  1. ATEZOLIZUMAB. [Suspect]
     Active Substance: ATEZOLIZUMAB
     Indication: NON-SMALL CELL LUNG CANCER METASTATIC
     Dosage: SUBSEQUENT DOSE ON: 30/SEP/2019, 21/OCT/2019, 11/NOV/2019, 02/DEC/2019, 23/DEC/2019, 14/JAN/2020, 03
     Route: 041
     Dates: start: 20190909

REACTIONS (2)
  - Hypoglycaemia [Recovered/Resolved]
  - Autoimmune hepatitis [Recovered/Resolved]

NARRATIVE: CASE EVENT DATE: 20190912
